FAERS Safety Report 10170296 (Version 2)
Quarter: 2014Q2

REPORT INFORMATION
  Report Type: Spontaneous
  Country: JP (occurrence: JP)
  Receive Date: 20140513
  Receipt Date: 20140529
  Transmission Date: 20141212
  Serious: Yes (Hospitalization, Other)
  Sender: FDA-Public Use
  Company Number: PHHY2014JP057502

PATIENT
  Age: 12 Year
  Sex: Female

DRUGS (1)
  1. TOBI [Suspect]
     Indication: CYSTIC FIBROSIS
     Dosage: 600 MG, DAILY
     Route: 055
     Dates: start: 20131104

REACTIONS (1)
  - Oesophageal varices haemorrhage [Recovered/Resolved]
